FAERS Safety Report 5198957-7 (Version None)
Quarter: 2006Q4

REPORT INFORMATION
  Report Type: 
  Country: None (occurrence: None)
  Receive Date: 20060921
  Receipt Date: 20060407
  Transmission Date: 20070319
  Serious: Yes (Other)
  Sender: FDA-Public Use
  Company Number: PHEH2006US01795

PATIENT
  Age: 37 Year
  Sex: Female
  Weight: 51.2 kg

DRUGS (5)
  1. ZELNORM [Suspect]
     Indication: ABDOMINAL PAIN
     Dosage: 6 MG, BID, ORAL
     Route: 048
     Dates: start: 20060120, end: 20060202
  2. PROTONIX [Concomitant]
  3. LEVAQUIN [Concomitant]
  4. BIAXIN [Concomitant]
  5. PEPTO-BISMOL (BISMUTH SUBSALICYLATE) [Concomitant]

REACTIONS (4)
  - ARTHRALGIA [None]
  - OEDEMA [None]
  - SERUM SICKNESS [None]
  - URTICARIA [None]
